FAERS Safety Report 24050420 (Version 1)
Quarter: 2024Q3

REPORT INFORMATION
  Report Type: Spontaneous
  Country: ZA (occurrence: None)
  Receive Date: 20240704
  Receipt Date: 20240704
  Transmission Date: 20241017
  Serious: Yes (Hospitalization)
  Sender: ASTRAZENECA
  Company Number: 2024A148892

PATIENT
  Age: 60 Year
  Sex: Female

DRUGS (9)
  1. DAPAGLIFLOZIN PROPANEDIOL [Suspect]
     Active Substance: DAPAGLIFLOZIN PROPANEDIOL
     Indication: Type 2 diabetes mellitus
     Route: 048
  2. TELMISARTAN [Concomitant]
     Active Substance: TELMISARTAN
     Indication: Hypertension
     Route: 048
  3. MIBITEZ [Concomitant]
     Indication: Hyperlipidaemia
     Route: 048
  4. FERROUS FORTE [Concomitant]
     Route: 048
  5. METFORMIN HYDROCHLORIDE [Concomitant]
     Active Substance: METFORMIN HYDROCHLORIDE
     Indication: Type 2 diabetes mellitus
     Route: 048
  6. OPTISULIN CARTRIDGE [Concomitant]
     Indication: Type 1 diabetes mellitus
     Route: 058
  7. MUPIROCIN [Concomitant]
     Active Substance: MUPIROCIN
     Route: 061
  8. SINUTAB SINUS PAIN [Concomitant]
     Route: 048
  9. LANSOPRAZOLE [Concomitant]
     Active Substance: LANSOPRAZOLE
     Indication: Ulcer
     Route: 048

REACTIONS (1)
  - Diabetic foot [Unknown]
